FAERS Safety Report 17275710 (Version 1)
Quarter: 2020Q1

REPORT INFORMATION
  Report Type: Spontaneous
  Country: US (occurrence: US)
  Receive Date: 20200116
  Receipt Date: 20200116
  Transmission Date: 20200409
  Serious: No
  Sender: FDA-Public Use
  Company Number: US-GLAXOSMITHKLINE-US2020005115

PATIENT
  Age: 55 Year
  Sex: Female

DRUGS (1)
  1. ABREVA [Suspect]
     Active Substance: DOCOSANOL
     Indication: ORAL HERPES
     Dosage: UNK ( 3 DOSE)
     Dates: start: 20200107, end: 20200108

REACTIONS (2)
  - Adverse drug reaction [Unknown]
  - Lip swelling [Unknown]

NARRATIVE: CASE EVENT DATE: 20200108
